FAERS Safety Report 12916370 (Version 1)
Quarter: 2016Q4

REPORT INFORMATION
  Report Type: Spontaneous
  Country: US (occurrence: US)
  Receive Date: 20161107
  Receipt Date: 20161107
  Transmission Date: 20170207
  Serious: No
  Sender: FDA-Public Use
  Company Number: None

PATIENT

DRUGS (1)
  1. PERCOCET [Suspect]
     Active Substance: ACETAMINOPHEN\OXYCODONE HYDROCHLORIDE

REACTIONS (6)
  - Overdose [None]
  - Hepatic cyst [None]
  - Pulmonary thrombosis [None]
  - Hepatic neoplasm [None]
  - Hepatic failure [None]
  - Malignant neoplasm progression [None]
